FAERS Safety Report 7003275-8 (Version None)
Quarter: 2010Q3

REPORT INFORMATION
  Report Type: 
  Country: None (occurrence: None)
  Receive Date: 20100920
  Receipt Date: 20100910
  Transmission Date: 20110219
  Serious: Yes (Other)
  Sender: FDA-Public Use
  Company Number: US-PFIZER INC-2009162473

PATIENT
  Sex: Female
  Weight: 52.608 kg

DRUGS (8)
  1. CHANTIX [Suspect]
     Indication: SMOKING CESSATION THERAPY
     Dosage: UNK
     Route: 048
  2. ASACOL [Concomitant]
     Indication: CROHN'S DISEASE
     Dosage: 800 MG, 1X/DAY
     Route: 048
  3. HUMIRA [Concomitant]
     Indication: CROHN'S DISEASE
     Dosage: 40 MG, 2X/MONTH
  4. HUMIRA [Concomitant]
     Indication: PSORIASIS
  5. ZYRTEC [Concomitant]
     Indication: HYPERSENSITIVITY
     Dosage: UNK
  6. IRON [Concomitant]
     Dosage: UNK
  7. CALCIUM [Concomitant]
     Dosage: UNK
  8. FOLIC ACID [Concomitant]
     Dosage: UNK

REACTIONS (2)
  - CROHN'S DISEASE [None]
  - NERVOUSNESS [None]
